FAERS Safety Report 21795651 (Version 1)
Quarter: 2022Q4

REPORT INFORMATION
  Report Type: Spontaneous
  Country: FR (occurrence: FR)
  Receive Date: 20221229
  Receipt Date: 20221229
  Transmission Date: 20230113
  Serious: Yes (Life-Threatening)
  Sender: FDA-Public Use
  Company Number: None

PATIENT
  Age: 72 Year
  Sex: Male
  Weight: 91 kg

DRUGS (5)
  1. REMIFENTANIL [Suspect]
     Active Substance: REMIFENTANIL
     Indication: Induction of anaesthesia
     Dosage: 1 DOSAGE FORM, 1 TOTAL
     Route: 042
     Dates: start: 20221020, end: 20221020
  2. ATRACURIUM BESYLATE [Suspect]
     Active Substance: ATRACURIUM BESYLATE
     Indication: Induction of anaesthesia
     Dosage: 50 MILLIGRAM, 1 TOTAL
     Route: 042
     Dates: start: 20221020, end: 20221020
  3. PROPOFOL LIPURO [Suspect]
     Active Substance: PROPOFOL
     Indication: Induction of anaesthesia
     Dosage: 1 DOSAGE FORM, 1 TOTAL
     Route: 042
     Dates: start: 20221020, end: 20221020
  4. LINEZOLID [Suspect]
     Active Substance: LINEZOLID
     Indication: Infection prophylaxis
     Dosage: 600 MILLIGRAM, 1 TOTAL
     Route: 042
     Dates: start: 20221020, end: 20221020
  5. KETAMINE [Suspect]
     Active Substance: KETAMINE
     Indication: Induction of anaesthesia
     Dosage: 20 MILLIGRAM, 1 TOTAL
     Route: 042
     Dates: start: 20221020, end: 20221020

REACTIONS (3)
  - Erythema [Recovered/Resolved]
  - Tachycardia [Recovered/Resolved]
  - Procedural hypotension [Recovered/Resolved]

NARRATIVE: CASE EVENT DATE: 20221020
